FAERS Safety Report 5148779-8 (Version None)
Quarter: 2006Q4

REPORT INFORMATION
  Report Type: 
  Country: None (occurrence: None)
  Receive Date: 20061107
  Receipt Date: 20061025
  Transmission Date: 20070319
  Serious: Yes (Other)
  Sender: FDA-Public Use
  Company Number: 06-001242

PATIENT
  Age: 79 Year
  Sex: Male

DRUGS (5)
  1. DOVONEX [Suspect]
     Indication: PSORIASIS
     Dosage: UNK, QD, TOPICAL
     Route: 061
     Dates: start: 20060701, end: 20060911
  2. DOVONEX                 (CALCIPOTRIENE) CREAM [Concomitant]
  3. ATENOLOL [Concomitant]
  4. KENALOG [Concomitant]
  5. BETAMETHISONE [Concomitant]

REACTIONS (2)
  - NEPHROLITHIASIS [None]
  - PAIN [None]
